FAERS Safety Report 7086216-7 (Version None)
Quarter: 2010Q4

REPORT INFORMATION
  Report Type: 
  Country: None (occurrence: None)
  Receive Date: 20101105
  Receipt Date: 20101025
  Transmission Date: 20110411
  Serious: Yes (Hospitalization)
  Sender: FDA-Public Use
  Company Number: FR-AMGEN-FRASP2010001115

PATIENT

DRUGS (9)
  1. NEULASTA [Suspect]
     Dosage: UNK
     Route: 058
     Dates: start: 20091101, end: 20100930
  2. TEMERIT                            /01339101/ [Concomitant]
  3. KARDEGIC                           /00002703/ [Concomitant]
  4. LASILIX                            /00032601/ [Concomitant]
  5. LEVOTHYROXINE SODIUM [Concomitant]
  6. TAHOR [Concomitant]
  7. STABLON                            /00956301/ [Concomitant]
  8. HEXAQUINE [Concomitant]
  9. TANAKAN                            /01003103/ [Suspect]

REACTIONS (2)
  - LEUKOCYTOSIS [None]
  - SPLENOMEGALY [None]
